FAERS Safety Report 9968405 (Version 1)
Quarter: 2014Q1

REPORT INFORMATION
  Report Type: Report from Study
  Country: US (occurrence: US)
  Receive Date: 20140306
  Receipt Date: 20140306
  Transmission Date: 20141002
  Serious: No
  Sender: FDA-Public Use
  Company Number: US-ABBVIE-13P-163-1143077-00

PATIENT
  Age: 60 Year
  Sex: Female

DRUGS (11)
  1. HUMIRA [Suspect]
     Indication: CROHN^S DISEASE
     Dates: start: 201212
  2. HUMIRA [Suspect]
     Dates: start: 201306
  3. HUMIRA [Suspect]
     Dates: start: 201308
  4. PREDNISONE [Concomitant]
     Indication: CROHN^S DISEASE
     Dosage: 3 MG DAILY
  5. OMEPRAZOLE [Concomitant]
     Indication: CROHN^S DISEASE
     Dosage: 20 MG DAILY
  6. LASIX [Concomitant]
     Indication: LYMPHOEDEMA
  7. NOVOLOG SLIDING SCALE [Concomitant]
     Indication: DIABETES MELLITUS
  8. PERCOCET [Concomitant]
     Indication: PAIN
  9. XANAX [Concomitant]
     Indication: ANXIETY
  10. CALCIUM [Concomitant]
     Indication: MINERAL SUPPLEMENTATION
  11. VITAMIN D [Concomitant]
     Indication: VITAMIN SUPPLEMENTATION

REACTIONS (4)
  - Crohn^s disease [Not Recovered/Not Resolved]
  - Sinusitis [Not Recovered/Not Resolved]
  - Pharyngitis [Not Recovered/Not Resolved]
  - Oral herpes [Not Recovered/Not Resolved]
